FAERS Safety Report 15043880 (Version 1)
Quarter: 2018Q2

REPORT INFORMATION
  Report Type: Spontaneous
  Country: GB (occurrence: GB)
  Receive Date: 20180621
  Receipt Date: 20180621
  Transmission Date: 20180711
  Serious: Yes (Life-Threatening, Hospitalization, Other)
  Sender: FDA-Public Use
  Company Number: GB-TEVA-2018-GB-911539

PATIENT
  Age: 67 Year
  Sex: Female
  Weight: 117 kg

DRUGS (9)
  1. METHYLPREDNISOLONE. [Suspect]
     Active Substance: METHYLPREDNISOLONE
     Indication: TUBULOINTERSTITIAL NEPHRITIS
     Route: 065
  2. FUROSEMIDE. [Concomitant]
     Active Substance: FUROSEMIDE
     Dosage: 80 MILLIGRAM DAILY;
     Dates: start: 20180329
  3. RANITIDINE. [Concomitant]
     Active Substance: RANITIDINE
     Dosage: 300 MILLIGRAM DAILY; NOTES FOR DISPENSER: 2 MORE WEEKS THEN STOP
     Dates: start: 20180329
  4. METFORMIN [Concomitant]
     Active Substance: METFORMIN HYDROCHLORIDE
     Dosage: 2000 MILLIGRAM DAILY;
     Dates: start: 20180501
  5. NAPROXEN. [Concomitant]
     Active Substance: NAPROXEN
     Indication: KNEE ARTHROPLASTY
     Dosage: 1000 MILLIGRAM DAILY;
     Dates: start: 20180102
  6. ALENDRONIC ACID [Concomitant]
     Active Substance: ALENDRONIC ACID
     Dosage: WHILE ON PREDNISOLONE.
     Dates: start: 20180329
  7. ADCAL-D3 [Concomitant]
     Active Substance: CALCIUM CARBONATE\CHOLECALCIFEROL
     Dosage: 2 DOSAGE FORMS DAILY; TAKE 2 TABLETS PER DAY WHILE ON PREDNISOLONE. NOTES FOR DISPENSER: 2 MORE WEEK
     Dates: start: 20180329
  8. COTRIMOXAZOLE [Concomitant]
     Active Substance: SULFAMETHOXAZOLE\TRIMETHOPRIM
     Dosage: 1 DOSAGE FORMS DAILY; WHILE ON PREDNISOLONE.?NOTES FOR DISPENSER: 2 MORE WEEKS THEN STOP
     Dates: start: 20180329
  9. LAXIDO [Concomitant]
     Active Substance: POLYETHYLENE GLYCOL 3350\POTASSIUM CHLORIDE\SODIUM BICARBONATE\SODIUM CHLORIDE
     Dosage: 2 SACHETS UP TO THREE TIMES A DAY
     Dates: start: 20180215

REACTIONS (1)
  - Hyperglycaemia [Unknown]
